FAERS Safety Report 14718123 (Version 1)
Quarter: 2018Q2

REPORT INFORMATION
  Report Type: Spontaneous
  Country: US (occurrence: US)
  Receive Date: 20180404
  Receipt Date: 20180404
  Transmission Date: 20180711
  Serious: No
  Sender: FDA-Public Use
  Company Number: US-SA-2018SA039258

PATIENT
  Age: 19 Year
  Sex: Male

DRUGS (1)
  1. DUPIXENT [Suspect]
     Active Substance: DUPILUMAB
     Indication: MULTIPLE SCLEROSIS
     Route: 058
     Dates: start: 201708

REACTIONS (2)
  - Product use in unapproved indication [Unknown]
  - Tinea infection [Recovering/Resolving]

NARRATIVE: CASE EVENT DATE: 20180115
